FAERS Safety Report 21024375 (Version 5)
Quarter: 2023Q4

REPORT INFORMATION
  Report Type: Report from Study
  Country: US (occurrence: US)
  Receive Date: 20220629
  Receipt Date: 20231019
  Transmission Date: 20240110
  Serious: Yes (Hospitalization)
  Sender: FDA-Public Use
  Company Number: US-PFIZER INC-PV202200006071

PATIENT
  Age: 76 Year
  Sex: Male
  Weight: 75.8 kg

DRUGS (3)
  1. DOXORUBICIN HYDROCHLORIDE [Suspect]
     Active Substance: DOXORUBICIN HYDROCHLORIDE
     Indication: Leiomyosarcoma
     Dosage: 75 MG/M2, CYCLE 1/DAY 1, DAY 1 OF 21 DAY CYCLE
     Route: 042
     Dates: start: 20220607, end: 20220607
  2. INVESTIGATIONAL PRODUCT [Suspect]
     Active Substance: INVESTIGATIONAL PRODUCT
     Indication: Leiomyosarcoma
     Dosage: 2 MG/KG, CYCLE 1/DAY 1, DAYS 1 AND 8 OF 21 DAY CYCLE
     Route: 042
     Dates: start: 20220607, end: 20220607
  3. NEULASTA [Concomitant]
     Active Substance: PEGFILGRASTIM
     Indication: Prophylaxis
     Dosage: 6 MG, ONCE
     Route: 058
     Dates: start: 20220607, end: 20220607

REACTIONS (1)
  - Staphylococcal sepsis [Recovered/Resolved]

NARRATIVE: CASE EVENT DATE: 20220615
